FAERS Safety Report 22400015 (Version 5)
Quarter: 2024Q4

REPORT INFORMATION
  Report Type: Report from Study
  Country: IT (occurrence: IT)
  Receive Date: 20230602
  Receipt Date: 20241003
  Transmission Date: 20250114
  Serious: Yes (Life-Threatening, Hospitalization, Other)
  Sender: REGENERON
  Company Number: IT-SA-SAC20230531000303

PATIENT
  Age: 75 Year
  Sex: Female

DRUGS (5)
  1. CEMIPLIMAB [Suspect]
     Active Substance: CEMIPLIMAB
     Indication: Cervix carcinoma recurrent
     Dosage: 350 MG, Q3W
     Route: 042
     Dates: start: 20221019, end: 20221122
  2. CEMIPLIMAB [Suspect]
     Active Substance: CEMIPLIMAB
     Dosage: 350 MG, Q3W
     Route: 042
     Dates: start: 202210, end: 2022
  3. PANTOPRAZOLE [Concomitant]
     Active Substance: PANTOPRAZOLE
     Indication: Gastrointestinal disorder
     Dosage: 20 MG
     Dates: start: 20220930
  4. LEVOTHYROXINE [Concomitant]
     Active Substance: LEVOTHYROXINE
     Indication: Hypothyroidism
     Dosage: 50 MG
     Dates: start: 20221001
  5. FUROSEMIDE [Concomitant]
     Active Substance: FUROSEMIDE
     Indication: Hypertension
     Dosage: 25 MG
     Dates: start: 20221001

REACTIONS (4)
  - Cardiotoxicity [Recovered/Resolved]
  - Hypertransaminasaemia [Recovered/Resolved]
  - Acute myocardial infarction [Recovered/Resolved]
  - Left ventricular dysfunction [Recovered/Resolved]

NARRATIVE: CASE EVENT DATE: 20221202
